FAERS Safety Report 4469668-8 (Version None)
Quarter: 2004Q4

REPORT INFORMATION
  Report Type: 
  Country: None (occurrence: None)
  Receive Date: 20041008
  Receipt Date: 20041006
  Transmission Date: 20050328
  Serious: Yes (Other)
  Sender: FDA-Public Use
  Company Number: DE-MERCK-0410DEU00184

PATIENT
  Age: 75 Year
  Sex: Female

DRUGS (2)
  1. VIOXX [Suspect]
     Indication: MUSCULOSKELETAL PAIN
     Route: 048
     Dates: start: 20011001
  2. VIOXX [Suspect]
     Route: 048

REACTIONS (1)
  - MYOCARDIAL INFARCTION [None]
